FAERS Safety Report 12120233 (Version 1)
Quarter: 2016Q1

REPORT INFORMATION
  Report Type: Spontaneous
  Country: FR (occurrence: FR)
  Receive Date: 20160226
  Receipt Date: 20160226
  Transmission Date: 20160526
  Serious: Yes (Hospitalization)
  Sender: FDA-Public Use
  Company Number: FR-PFIZER INC-2016113386

PATIENT
  Age: 48 Year
  Sex: Male

DRUGS (6)
  1. KEPPRA [Concomitant]
     Active Substance: LEVETIRACETAM
     Dosage: UNK
  2. DEPAKINE [Concomitant]
     Active Substance: VALPROATE SODIUM
     Dosage: UNK
  3. TEGRETOL [Concomitant]
     Active Substance: CARBAMAZEPINE
     Dosage: UNK
  4. PYOSTACINE [Suspect]
     Active Substance: PRISTINAMYCIN
     Indication: ABSCESS ORAL
     Dosage: 1 G, 3X/DAY
     Route: 048
     Dates: start: 20160112, end: 20160120
  5. DALACINE [Suspect]
     Active Substance: CLINDAMYCIN HYDROCHLORIDE
     Indication: ABSCESS ORAL
     Dosage: 600 MG, SINGLE
     Route: 042
     Dates: start: 20160125, end: 20160125
  6. OFLOCET /00731801/ [Suspect]
     Active Substance: OFLOXACIN
     Dosage: UNK
     Route: 001
     Dates: start: 20160125, end: 20160126

REACTIONS (5)
  - Drug eruption [Recovered/Resolved]
  - Oedema peripheral [Recovering/Resolving]
  - Pruritus [Unknown]
  - Pyrexia [Recovered/Resolved]
  - Rash maculo-papular [Recovered/Resolved]

NARRATIVE: CASE EVENT DATE: 20160126
